FAERS Safety Report 22321319 (Version 1)
Quarter: 2023Q2

REPORT INFORMATION
  Report Type: Spontaneous
  Country: IN (occurrence: IN)
  Receive Date: 20230515
  Receipt Date: 20230515
  Transmission Date: 20230721
  Serious: Yes (Hospitalization)
  Sender: FDA-Public Use
  Company Number: IN-JNJFOC-20230522199

PATIENT
  Age: 5 Year
  Sex: Female

DRUGS (1)
  1. EVICEL [Suspect]
     Active Substance: FIBRINOGEN HUMAN\THROMBIN HUMAN
     Indication: Labyrinthectomy
     Route: 065

REACTIONS (4)
  - Cough [Unknown]
  - Pyrexia [Unknown]
  - Swelling [Unknown]
  - Off label use [Unknown]
